FAERS Safety Report 5158402-4 (Version None)
Quarter: 2006Q4

REPORT INFORMATION
  Report Type: 
  Country: None (occurrence: None)
  Receive Date: 20061116
  Receipt Date: 20061110
  Transmission Date: 20070319
  Serious: Yes (Death, Hospitalization)
  Sender: FDA-Public Use
  Company Number: 2006-01639

PATIENT
  Age: 59 Year

DRUGS (6)
  1. VELCADE [Suspect]
     Indication: MULTIPLE MYELOMA
  2. ADRIAMYCIN PFS [Suspect]
     Indication: MULTIPLE MYELOMA
  3. DEXAMETHASONE [Suspect]
     Indication: MULTIPLE MYELOMA
  4. NIFEDIPINE [Concomitant]
  5. COLCHICINE (COLCHICINE) [Concomitant]
  6. FLUCONAZOLE [Concomitant]

REACTIONS (6)
  - DIARRHOEA [None]
  - GASTRIC ULCER [None]
  - MELAENA [None]
  - OESOPHAGITIS HAEMORRHAGIC [None]
  - PNEUMONIA [None]
  - REFLUX OESOPHAGITIS [None]
